FAERS Safety Report 11593381 (Version 1)
Quarter: 2015Q4

REPORT INFORMATION
  Report Type: Spontaneous
  Country: US (occurrence: None)
  Receive Date: 20151002
  Receipt Date: 20151002
  Transmission Date: 20160304
  Serious: Yes (Life-Threatening, Hospitalization, Disabling, Other)
  Sender: FDA-Public Use
  Company Number: None

PATIENT
  Age: 56 Year
  Sex: Female
  Weight: 106.6 kg

DRUGS (18)
  1. CINNAMON. [Concomitant]
     Active Substance: CINNAMON
  2. SITAGLIPTIN [Concomitant]
     Active Substance: SITAGLIPTIN
  3. SAXAGLIPTIN [Concomitant]
     Active Substance: SAXAGLIPTIN
  4. DAPAGLIFLOZIN [Concomitant]
     Active Substance: DAPAGLIFLOZIN
  5. BAYER [Concomitant]
     Active Substance: ASPIRIN
  6. PRILOSEC [Concomitant]
     Active Substance: OMEPRAZOLE MAGNESIUM
  7. COMAIZINE [Concomitant]
  8. PROCHORPERZINE [Concomitant]
  9. PROPRANOLOL [Suspect]
     Active Substance: PROPRANOLOL\PROPRANOLOL HYDROCHLORIDE
     Indication: HEADACHE
     Dosage: STARTED WITH 2 PILLS DR UP MED TO 3X DAILY?AM 1 PILL 20 MG?LUNCH 1 PILL 20 MG?PM 1 PILL 20 MG
     Route: 048
     Dates: start: 20150223, end: 20150823
  10. PROPRANOLOL [Suspect]
     Active Substance: PROPRANOLOL\PROPRANOLOL HYDROCHLORIDE
     Indication: HEAD TITUBATION
     Dosage: STARTED WITH 2 PILLS DR UP MED TO 3X DAILY?AM 1 PILL 20 MG?LUNCH 1 PILL 20 MG?PM 1 PILL 20 MG
     Route: 048
     Dates: start: 20150223, end: 20150823
  11. METFORMIN [Concomitant]
     Active Substance: METFORMIN HYDROCHLORIDE
  12. PENCILLIAN [Concomitant]
  13. CODEINE [Concomitant]
     Active Substance: CODEINE
  14. CANE [Concomitant]
  15. PRECISION XTRA GLUCOSE METER [Concomitant]
  16. CHAIR WALKER [Concomitant]
  17. PROPRANOLOL [Suspect]
     Active Substance: PROPRANOLOL\PROPRANOLOL HYDROCHLORIDE
     Indication: CARDIAC MURMUR
     Dosage: STARTED WITH 2 PILLS DR UP MED TO 3X DAILY?AM 1 PILL 20 MG?LUNCH 1 PILL 20 MG?PM 1 PILL 20 MG
     Route: 048
     Dates: start: 20150223, end: 20150823
  18. ACETAMINOPHEN. [Concomitant]
     Active Substance: ACETAMINOPHEN

REACTIONS (21)
  - Memory impairment [None]
  - Visual impairment [None]
  - Hypoaesthesia [None]
  - Paraesthesia [None]
  - Confusional state [None]
  - Asthenia [None]
  - Pharyngeal disorder [None]
  - Tongue disorder [None]
  - Thinking abnormal [None]
  - Pain in extremity [None]
  - Dizziness [None]
  - Somnolence [None]
  - Transient ischaemic attack [None]
  - Feeling abnormal [None]
  - Dry throat [None]
  - Speech disorder [None]
  - Inappropriate schedule of drug administration [None]
  - Headache [None]
  - Skin exfoliation [None]
  - Mood altered [None]
  - Head titubation [None]

NARRATIVE: CASE EVENT DATE: 20150804
